FAERS Safety Report 6883147-X (Version None)
Quarter: 2010Q3

REPORT INFORMATION
  Report Type: 
  Country: None (occurrence: None)
  Receive Date: 20100727
  Receipt Date: 20100712
  Transmission Date: 20110219
  Serious: Yes (Hospitalization, Other)
  Sender: FDA-Public Use
  Company Number: AUR-APL-2010-01394

PATIENT
  Sex: Female

DRUGS (2)
  1. SIMVASTATIN [Suspect]
     Dosage: 40MG, DAILY
  2. DALKTARIN GEL [Suspect]
     Indication: ORAL CANDIDIASIS
     Dosage: 2%  ORAL
     Route: 048

REACTIONS (4)
  - DRUG INTERACTION [None]
  - OEDEMA MOUTH [None]
  - PHARYNGEAL OEDEMA [None]
  - SWOLLEN TONGUE [None]
